FAERS Safety Report 5736598-0 (Version None)
Quarter: 2008Q2

REPORT INFORMATION
  Report Type: 
  Country: None (occurrence: None)
  Receive Date: 20080513
  Receipt Date: 20080506
  Transmission Date: 20081010
  Serious: Yes (Other)
  Sender: FDA-Public Use
  Company Number: AU-ASTRAZENECA-2008AP02014

PATIENT
  Age: 63 Year
  Sex: Male

DRUGS (7)
  1. SEROQUEL [Suspect]
     Indication: ANXIETY
     Route: 048
  2. LUVOX [Concomitant]
     Indication: ANXIETY
     Route: 048
     Dates: start: 20070601
  3. LUVOX [Concomitant]
     Indication: DEPRESSION
     Route: 048
     Dates: start: 20070601
  4. ACIMAX [Concomitant]
  5. LIPITOR [Concomitant]
  6. DIAMICRON [Concomitant]
  7. DIAFORMIN [Concomitant]

REACTIONS (1)
  - DRUG ABUSE [None]
